FAERS Safety Report 9422858 (Version 1)
Quarter: 2013Q3

REPORT INFORMATION
  Report Type: Spontaneous
  Country: US (occurrence: None)
  Receive Date: 20130724
  Receipt Date: 20130724
  Transmission Date: 20140515
  Serious: Yes (Other)
  Sender: FDA-Public Use
  Company Number: IMP_06752_2013

PATIENT
  Age: 75 Year
  Sex: Female

DRUGS (1)
  1. DOXYCYCLINE [Suspect]
     Indication: CELLULITIS
     Dosage: UNKNOWN UNTIL UNKNOWN
     Route: 048

REACTIONS (3)
  - Burns second degree [None]
  - Hypersensitivity [None]
  - Injury [None]
